FAERS Safety Report 7513632-9 (Version None)
Quarter: 2011Q2

REPORT INFORMATION
  Report Type: 
  Country: None (occurrence: None)
  Receive Date: 20110531
  Receipt Date: 20110520
  Transmission Date: 20111010
  Serious: Yes (Other)
  Sender: FDA-Public Use
  Company Number: US-BAYER-2011-015691

PATIENT
  Age: 40 Year
  Weight: 95.238 kg

DRUGS (2)
  1. MIRENA [Suspect]
     Indication: MENORRHAGIA
     Dosage: 20 MCG/24HR, UNK
     Route: 015
     Dates: start: 20070911, end: 20110101
  2. MIRENA [Suspect]
     Indication: CONTRACEPTION

REACTIONS (6)
  - HYPOMENORRHOEA [None]
  - DEVICE EXPULSION [None]
  - OLIGOMENORRHOEA [None]
  - POST PROCEDURAL HAEMORRHAGE [None]
  - MENORRHAGIA [None]
  - AMENORRHOEA [None]
